FAERS Safety Report 18628139 (Version 1)
Quarter: 2020Q4

REPORT INFORMATION
  Report Type: Spontaneous
  Country: GB (occurrence: GB)
  Receive Date: 20201217
  Receipt Date: 20201217
  Transmission Date: 20210114
  Serious: Yes (Life-Threatening)
  Sender: FDA-Public Use
  Company Number: GB-TEVA-2020-GB-1857741

PATIENT
  Age: 82 Year
  Sex: Female

DRUGS (8)
  1. TRAMADOL. [Concomitant]
     Active Substance: TRAMADOL
     Route: 048
  2. ALLOPURINOL. [Concomitant]
     Active Substance: ALLOPURINOL
     Route: 048
  3. DONEPEZIL. [Concomitant]
     Active Substance: DONEPEZIL
     Dosage: 10 MILLIGRAM DAILY; AT NIGHT
     Route: 048
  4. EDOXABAN [Concomitant]
     Active Substance: EDOXABAN TOSYLATE
     Route: 048
  5. LINEZOLID. [Suspect]
     Active Substance: LINEZOLID
     Route: 048
     Dates: start: 20200515, end: 20200524
  6. PERINDOPRIL [Concomitant]
     Active Substance: PERINDOPRIL
     Route: 048
  7. ATORVASTATIN [Concomitant]
     Active Substance: ATORVASTATIN
     Dosage: 40 MILLIGRAM DAILY; AT NIGHT
     Route: 048
  8. CLOPIDOGREL [Concomitant]
     Active Substance: CLOPIDOGREL BISULFATE
     Route: 048

REACTIONS (1)
  - Thrombocytopenia [Recovered/Resolved]
